FAERS Safety Report 4835991-8 (Version None)
Quarter: 2005Q4

REPORT INFORMATION
  Report Type: 
  Country: None (occurrence: None)
  Receive Date: 20051123
  Receipt Date: 20051117
  Transmission Date: 20060501
  Serious: Yes (Hospitalization)
  Sender: FDA-Public Use
  Company Number: FR-ABBOTT-05P-056-0317577-00

PATIENT
  Age: 39 Year
  Sex: Male

DRUGS (4)
  1. DEPAKENE [Suspect]
     Indication: SIMPLE PARTIAL SEIZURES
     Route: 048
     Dates: start: 20020101, end: 20051002
  2. TOPIRAMATE [Concomitant]
     Indication: SIMPLE PARTIAL SEIZURES
     Route: 048
  3. TEMOZOLOMIDE [Concomitant]
     Indication: DRUG USE FOR UNKNOWN INDICATION
     Dosage: 5 DAYS PER MONTH
  4. CLOBAZAM [Concomitant]
     Indication: SIMPLE PARTIAL SEIZURES
     Route: 048

REACTIONS (5)
  - ABDOMINAL PAIN [None]
  - CYTOLYTIC HEPATITIS [None]
  - OEDEMATOUS PANCREATITIS [None]
  - PERITONEAL EFFUSION [None]
  - WHITE BLOOD CELL COUNT DECREASED [None]
